FAERS Safety Report 7984933-5 (Version None)
Quarter: 2011Q4

REPORT INFORMATION
  Report Type: 
  Country: None (occurrence: None)
  Receive Date: 20111216
  Receipt Date: 20111024
  Transmission Date: 20120403
  Serious: No
  Sender: FDA-Public Use
  Company Number: US-ALLERGAN-1114025US

PATIENT
  Age: 52 Year
  Sex: Female
  Weight: 68.934 kg

DRUGS (1)
  1. LATISSE [Suspect]
     Indication: PRODUCT USED FOR UNKNOWN INDICATION
     Dosage: 2 GTT, BID
     Route: 047
     Dates: start: 20111001, end: 20111001

REACTIONS (4)
  - OCULAR HYPERAEMIA [None]
  - WRONG DRUG ADMINISTERED [None]
  - PERIORBITAL OEDEMA [None]
  - EYE IRRITATION [None]
